FAERS Safety Report 4307779-8 (Version None)
Quarter: 2004Q1

REPORT INFORMATION
  Report Type: 
  Country: None (occurrence: None)
  Receive Date: 20040225
  Receipt Date: 20030509
  Transmission Date: 20041129
  Serious: Yes (Hospitalization)
  Sender: FDA-Public Use
  Company Number: WAES 0305USA01206

PATIENT
  Age: 81 Year
  Sex: Female

DRUGS (2)
  1. ZOCOR [Suspect]
     Dosage: 80 MG/DAILY/PO+
     Route: 048
  2. LOPID [Concomitant]

REACTIONS (1)
  - RHABDOMYOLYSIS [None]
